FAERS Safety Report 4472280-8 (Version None)
Quarter: 2004Q4

REPORT INFORMATION
  Report Type: 
  Country: None (occurrence: None)
  Receive Date: 20041007
  Receipt Date: 20040920
  Transmission Date: 20050328
  Serious: Yes (Hospitalization)
  Sender: FDA-Public Use
  Company Number: 200408493

PATIENT
  Age: 51 Year
  Sex: Female

DRUGS (4)
  1. BOTOX [Suspect]
     Indication: MUSCLE DISORDER
     Dates: start: 20030625
  2. CELEXA [Concomitant]
  3. TRAZODONE HCL [Concomitant]
  4. VICODIN [Concomitant]

REACTIONS (7)
  - CHEST PAIN [None]
  - DYSPNOEA [None]
  - ECHOCARDIOGRAM ABNORMAL [None]
  - HYPERHIDROSIS [None]
  - NAUSEA [None]
  - PAIN [None]
  - PAIN IN EXTREMITY [None]
